FAERS Safety Report 16025625 (Version 10)
Quarter: 2021Q4

REPORT INFORMATION
  Report Type: Spontaneous
  Country: JP (occurrence: JP)
  Receive Date: 20190302
  Receipt Date: 20211124
  Transmission Date: 20220303
  Serious: Yes (Hospitalization, Other)
  Sender: FDA-Public Use
  Company Number: JP-UNITED THERAPEUTICS-UNT-2017-018367

PATIENT
  Age: 36 Year
  Sex: Female
  Weight: 47.6 kg

DRUGS (28)
  1. REMODULIN [Suspect]
     Active Substance: TREPROSTINIL
     Indication: Pulmonary arterial hypertension
     Dosage: 0.015 ?G/KG, CONTINUING
     Route: 058
     Dates: start: 20171205
  2. REMODULIN [Suspect]
     Active Substance: TREPROSTINIL
     Dosage: 0.030 ?G/KG, CONTINUING
     Route: 058
     Dates: start: 201712
  3. REMODULIN [Suspect]
     Active Substance: TREPROSTINIL
     Dosage: 0.045 ?G/KG, CONTINUING
     Route: 058
     Dates: start: 201712
  4. REMODULIN [Suspect]
     Active Substance: TREPROSTINIL
     Dosage: 0.060 ?G/KG, CONTINUING
     Route: 058
     Dates: start: 201712
  5. REMODULIN [Suspect]
     Active Substance: TREPROSTINIL
     Dosage: 0.078 ?G/KG, CONTINUING
     Route: 058
     Dates: start: 201712
  6. REMODULIN [Suspect]
     Active Substance: TREPROSTINIL
     Dosage: 0.042 ?G/KG, CONTINUING
     Route: 058
     Dates: start: 201712
  7. REMODULIN [Suspect]
     Active Substance: TREPROSTINIL
     Dosage: 0.102 ?G/KG, CONTINUING
     Route: 058
     Dates: start: 2018
  8. REMODULIN [Suspect]
     Active Substance: TREPROSTINIL
     Dosage: 0.108 ?G/KG, CONTINUING
     Route: 058
     Dates: end: 201901
  9. REMODULIN [Suspect]
     Active Substance: TREPROSTINIL
     Indication: Pulmonary arterial hypertension
     Dosage: (95.5 NG/KG/MIN) BY 4 STEPS (BY ONE-QUARTER, 4 DAYS), CONTINUING
     Route: 041
     Dates: start: 20190110
  10. REMODULIN [Suspect]
     Active Substance: TREPROSTINIL
     Dosage: 0.102 ?G/KG, CONTINUING
     Route: 041
     Dates: start: 2019, end: 201902
  11. REMODULIN [Suspect]
     Active Substance: TREPROSTINIL
     Dosage: 0.108 ?G/KG, CONTINUING
     Route: 041
     Dates: start: 201902, end: 20190228
  12. OPSUMIT [Concomitant]
     Active Substance: MACITENTAN
     Indication: Pulmonary arterial hypertension
     Dosage: 10 MG, QD (PER DAY)
     Route: 048
     Dates: start: 201608
  13. REVATIO [Concomitant]
     Active Substance: SILDENAFIL CITRATE
     Indication: Pulmonary arterial hypertension
     Dosage: 60 MG, QD (PER DAY)
     Route: 048
     Dates: start: 200811
  14. LASIX [Concomitant]
     Active Substance: FUROSEMIDE
     Indication: Pulmonary arterial hypertension
     Dosage: 40 MG, QD (PER DAY)
     Route: 048
  15. CARBIMAZOLE [Concomitant]
     Active Substance: CARBIMAZOLE
     Indication: Pulmonary arterial hypertension
     Dosage: 5 MG, QD (PER DAY)
     Route: 048
  16. RABEPRAZOLE SODIUM [Concomitant]
     Active Substance: RABEPRAZOLE SODIUM
     Indication: Prophylaxis
     Dosage: UNK
     Route: 048
  17. SODIUM FERROUS CITRATE [Concomitant]
     Active Substance: SODIUM FERROUS CITRATE
     Indication: Pulmonary arterial hypertension
     Dosage: 100 MG, QD
     Route: 048
  18. PRIMPERAN [Concomitant]
     Active Substance: METOCLOPRAMIDE HYDROCHLORIDE
     Indication: Constipation
     Dosage: 15 MG, QD (PER DAY)
     Route: 065
  19. MAGNESIUM OXIDE [Concomitant]
     Active Substance: MAGNESIUM OXIDE
     Indication: Constipation
     Dosage: UNK
     Route: 065
  20. SLOW K [Concomitant]
     Active Substance: POTASSIUM CHLORIDE
     Indication: Pulmonary arterial hypertension
     Dosage: 3600 MG, QD (PER DAY)
     Route: 048
  21. CYMBALTA [Concomitant]
     Active Substance: DULOXETINE HYDROCHLORIDE
     Indication: Pulmonary arterial hypertension
     Dosage: 20 MG, QD (PER DAY)
     Route: 048
  22. FLUNITRAZEPAM [Concomitant]
     Active Substance: FLUNITRAZEPAM
     Indication: Pulmonary arterial hypertension
     Dosage: 2 DF/DAY
     Route: 048
  23. FLUNITRAZEPAM [Concomitant]
     Active Substance: FLUNITRAZEPAM
     Dosage: 1 DF/DAY
     Route: 048
  24. Depas [Concomitant]
     Indication: Pulmonary arterial hypertension
     Dosage: 0.5 MG, QD (PER DAY)
     Route: 065
  25. BELSOMRA [Concomitant]
     Active Substance: SUVOREXANT
     Indication: Pulmonary arterial hypertension
     Dosage: 20 MG, QD (PER DAY)
     Route: 048
  26. REBAMIPIDE [Concomitant]
     Active Substance: REBAMIPIDE
     Indication: Pulmonary arterial hypertension
     Dosage: 300 MG, QD (PER DAY)
     Route: 048
  27. ALLEGRA [Concomitant]
     Active Substance: FEXOFENADINE HYDROCHLORIDE
     Indication: Rhinitis allergic
     Dosage: 120 MG, QD (PER DAY)
     Route: 048
  28. FLUTICASONE FUROATE [Concomitant]
     Active Substance: FLUTICASONE FUROATE
     Indication: Rhinitis allergic
     Dosage: UNK
     Route: 045

REACTIONS (10)
  - Vascular device infection [Recovered/Resolved]
  - Device related sepsis [Recovered/Resolved]
  - Physical deconditioning [Recovered/Resolved]
  - Injection site pain [Recovered/Resolved]
  - Pain in extremity [Not Recovered/Not Resolved]
  - Influenza [Recovered/Resolved]
  - Injection site induration [Recovered/Resolved]
  - Catheter site extravasation [Recovered/Resolved]
  - Injection site infection [Unknown]
  - Injection site infection [Recovered/Resolved]

NARRATIVE: CASE EVENT DATE: 20171201
